FAERS Safety Report 9027290 (Version 1)
Quarter: 2013Q1

REPORT INFORMATION
  Report Type: Report from Study
  Country: US (occurrence: US)
  Receive Date: 20130123
  Receipt Date: 20130123
  Transmission Date: 20140127
  Serious: Yes (Hospitalization)
  Sender: FDA-Public Use
  Company Number: US-VERTEX PHARMACEUTICALS INC.-2013-000980

PATIENT
  Age: 55 Year
  Sex: Female
  Weight: 69.4 kg

DRUGS (11)
  1. VX-950 (TELAPREVIR) [Suspect]
     Indication: HEPATITIS C
     Dosage: 750 MG, TID
     Route: 048
     Dates: start: 20121106
  2. PEGASYS [Suspect]
     Indication: HEPATITIS C
     Dosage: 180 ?G, QW
     Route: 058
     Dates: start: 20121106
  3. RIBAPAK [Suspect]
     Indication: HEPATITIS C
     Dosage: 600 MG, BID
     Route: 048
     Dates: start: 20121106
  4. GABAPENTIN [Concomitant]
     Dosage: 1 DF, QD
     Route: 048
  5. LISINOPRIL [Concomitant]
     Dosage: 10 MG, QD
     Route: 048
  6. LITHIUM CARBONATE [Concomitant]
     Dosage: 1 DF, QD
     Route: 048
  7. SERTRALINE [Concomitant]
     Dosage: 100 MG, QD
     Route: 048
  8. METOPROLOL [Concomitant]
     Dosage: 100 MG, QD
     Route: 048
  9. CLONIDINE [Concomitant]
     Dosage: 0.1 MG, QD
     Route: 048
  10. CHLORPROMAZINE [Concomitant]
     Dosage: 25 MG, QD
     Route: 048
  11. ATIVAN [Concomitant]
     Dosage: 0.5 MG, QD
     Route: 048

REACTIONS (2)
  - Dehydration [Unknown]
  - Nausea [Unknown]
